FAERS Safety Report 19728640 (Version 2)
Quarter: 2021Q3

REPORT INFORMATION
  Report Type: Report from Study
  Country: TH (occurrence: TH)
  Receive Date: 20210820
  Receipt Date: 20210830
  Transmission Date: 20211014
  Serious: Yes (Death, Hospitalization, Other)
  Sender: FDA-Public Use
  Company Number: TH-009507513-2103THA000877

PATIENT
  Age: 68 Year
  Sex: Male

DRUGS (4)
  1. PEMBROLIZUMAB. [Suspect]
     Active Substance: PEMBROLIZUMAB
     Indication: TRANSITIONAL CELL CARCINOMA
     Dosage: 200 MG / IV / 3 WEEKS, CONCENTRATION: 100 MG
     Route: 042
     Dates: start: 20210215, end: 20210215
  2. PEMBROLIZUMAB. [Suspect]
     Active Substance: PEMBROLIZUMAB
     Dosage: 200 MG / IV / 3 WEEKS, CONCENTRATION: 100 MG / EVERY 4
     Route: 042
     Dates: start: 20210322, end: 20210322
  3. PEMBROLIZUMAB. [Suspect]
     Active Substance: PEMBROLIZUMAB
     Dosage: 200 MG / IV / 3 WEEKS, CONCENTRATION: 100 MG / EVERY 4
     Route: 042
     Dates: start: 20210517, end: 20210517
  4. PEMBROLIZUMAB. [Suspect]
     Active Substance: PEMBROLIZUMAB
     Dosage: 200 MG / IV / 3 WEEKS, CONCENTRATION: 100 MG / EVERY 4, 3 CYCLE
     Route: 042
     Dates: start: 20210419, end: 20210419

REACTIONS (14)
  - Urinary tract infection [Recovered/Resolved]
  - Fatigue [Recovered/Resolved]
  - Feeding disorder [Not Recovered/Not Resolved]
  - Abdominal pain [Not Recovered/Not Resolved]
  - Thyroid disorder [Not Recovered/Not Resolved]
  - Sepsis [Fatal]
  - Coagulopathy [Unknown]
  - General physical health deterioration [Not Recovered/Not Resolved]
  - Intestinal perforation [Not Recovered/Not Resolved]
  - Inappropriate schedule of product administration [Unknown]
  - Fatigue [Not Recovered/Not Resolved]
  - Malnutrition [Unknown]
  - Inappropriate schedule of product administration [Unknown]
  - Infection [Recovered/Resolved]

NARRATIVE: CASE EVENT DATE: 2021
